FAERS Safety Report 10861257 (Version 1)
Quarter: 2015Q1

REPORT INFORMATION
  Report Type: Spontaneous
  Country: US (occurrence: None)
  Receive Date: 20150218
  Receipt Date: 20150218
  Transmission Date: 20150721
  Serious: Yes (Hospitalization)
  Sender: FDA-Public Use
  Company Number: None

PATIENT
  Age: 27 Year
  Sex: Female
  Weight: 40 kg

DRUGS (2)
  1. BELIMUMAB [Suspect]
     Active Substance: BELIMUMAB
     Indication: SYSTEMIC LUPUS ERYTHEMATOSUS
     Dates: start: 20150210
  2. BELIMUMAB [Concomitant]
     Active Substance: BELIMUMAB

REACTIONS (2)
  - Acute psychosis [None]
  - Trichomoniasis [None]

NARRATIVE: CASE EVENT DATE: 20150212
